FAERS Safety Report 14876645 (Version 11)
Quarter: 2022Q1

REPORT INFORMATION
  Report Type: Spontaneous
  Country: ES (occurrence: None)
  Receive Date: 20180510
  Receipt Date: 20220304
  Transmission Date: 20220423
  Serious: Yes (Hospitalization, Other)
  Sender: FDA-Public Use
  Company Number: 2018SE60380

PATIENT
  Age: 87 Year
  Sex: Male

DRUGS (25)
  1. BUDESONIDE [Suspect]
     Active Substance: BUDESONIDE
     Indication: Product used for unknown indication
     Dosage: 2 DF, QD, DRUG INTERVAL DOSAGE UNIT NUMBER:1 DAY
     Route: 055
  2. QUETIAPINE [Suspect]
     Active Substance: QUETIAPINE
     Indication: Product used for unknown indication
     Dosage: 25 MG, TID (2-2-1), DRUG INTERVAL DOSAGE UNIT NUMBER:1
     Route: 048
  3. FENTANYL [Suspect]
     Active Substance: FENTANYL
     Indication: Dyspnoea
     Route: 048
  4. FLUOXETINE [Suspect]
     Active Substance: FLUOXETINE HYDROCHLORIDE
     Indication: Product used for unknown indication
     Route: 065
  5. FUROSEMIDE [Suspect]
     Active Substance: FUROSEMIDE
     Indication: Product used for unknown indication
     Route: 048
  6. LATANOPROST [Suspect]
     Active Substance: LATANOPROST
     Indication: Product used for unknown indication
     Route: 065
  7. APIXABAN [Suspect]
     Active Substance: APIXABAN
     Indication: Cerebrovascular accident prophylaxis
     Route: 065
  8. IPRATROPIUM BROMIDE [Suspect]
     Active Substance: IPRATROPIUM BROMIDE
     Indication: Product used for unknown indication
     Route: 045
  9. IPRATROPIUM BROMIDE [Suspect]
     Active Substance: IPRATROPIUM BROMIDE
     Indication: Product used for unknown indication
     Route: 045
  10. VILDAGLIPTIN [Suspect]
     Active Substance: VILDAGLIPTIN
     Indication: Type 2 diabetes mellitus
     Route: 048
  11. VILDAGLIPTIN [Suspect]
     Active Substance: VILDAGLIPTIN
     Indication: Type 2 diabetes mellitus
     Route: 048
  12. MIRABEGRON [Suspect]
     Active Substance: MIRABEGRON
     Indication: Product used for unknown indication
     Route: 065
  13. ALBUTEROL SULFATE\IPRATROPIUM BROMIDE [Suspect]
     Active Substance: ALBUTEROL SULFATE\IPRATROPIUM BROMIDE
     Indication: Product used for unknown indication
     Dosage: 4 DF, QD, 1 DF, Q6H,DRUG INTERVAL DOSAGE UNIT NUMBER:1 DAY
     Route: 055
  14. FENTANYL [Suspect]
     Active Substance: FENTANYL
     Indication: Dyspnoea
     Route: 048
  15. ALBUTEROL SULFATE\IPRATROPIUM BROMIDE [Suspect]
     Active Substance: ALBUTEROL SULFATE\IPRATROPIUM BROMIDE
     Indication: Product used for unknown indication
     Dosage: 4 DF, QD, 1 DF, Q6H,DRUG INTERVAL DOSAGE UNIT NUMBER:1 DAY
     Route: 055
  16. VILDAGLIPTIN [Suspect]
     Active Substance: VILDAGLIPTIN
  17. FUROSEMIDE [Suspect]
     Active Substance: FUROSEMIDE
  18. FUROSEMIDE [Suspect]
     Active Substance: FUROSEMIDE
  19. FLUOXETINE HYDROCHLORIDE [Suspect]
     Active Substance: FLUOXETINE HYDROCHLORIDE
     Indication: Product used for unknown indication
  20. FLUOXETINE HYDROCHLORIDE [Suspect]
     Active Substance: FLUOXETINE HYDROCHLORIDE
     Indication: Product used for unknown indication
  21. XALATAN [Concomitant]
     Active Substance: LATANOPROST
     Indication: Product used for unknown indication
  22. QUETIAPINE FUMARATE [Concomitant]
     Active Substance: QUETIAPINE FUMARATE
     Indication: Product used for unknown indication
     Dosage: 25 MG, TID (2-2-1)
  23. VILDAGLIPTIN [Concomitant]
     Active Substance: VILDAGLIPTIN
     Indication: Product used for unknown indication
  24. PULMICORT TURBUHALER [Concomitant]
     Active Substance: BUDESONIDE
     Indication: Product used for unknown indication
     Dosage: UNK, BID
     Route: 055
  25. FUROSEMIDE [Concomitant]
     Active Substance: FUROSEMIDE
     Indication: Product used for unknown indication

REACTIONS (16)
  - Haemoglobin abnormal [Unknown]
  - Bone marrow oedema [Unknown]
  - Heart rate abnormal [Unknown]
  - Blood pressure abnormal [Unknown]
  - White blood cell count abnormal [Unknown]
  - C-reactive protein abnormal [Unknown]
  - Tachypnoea [Unknown]
  - Arrhythmia [Unknown]
  - Respiratory failure [Recovered/Resolved]
  - Dyspnoea [Recovered/Resolved]
  - Oedema peripheral [Unknown]
  - Pneumonia [Unknown]
  - Peripheral venous disease [Unknown]
  - Bronchiectasis [Unknown]
  - Product use in unapproved indication [Unknown]
  - Respiratory tract infection [Unknown]

NARRATIVE: CASE EVENT DATE: 20180101
